FAERS Safety Report 9812885 (Version 1)
Quarter: 2014Q1

REPORT INFORMATION
  Report Type: Spontaneous
  Country: US (occurrence: US)
  Receive Date: 20140113
  Receipt Date: 20140113
  Transmission Date: 20141002
  Serious: No
  Sender: FDA-Public Use
  Company Number: US-PFIZER INC-2014006701

PATIENT
  Age: 62 Year
  Sex: Male

DRUGS (1)
  1. ADVIL [Suspect]
     Dosage: 4 TABLETS AT A TIME EVERY 4 HOURS

REACTIONS (2)
  - Overdose [Unknown]
  - Dizziness [Unknown]
